FAERS Safety Report 5344306-0 (Version None)
Quarter: 2007Q2

REPORT INFORMATION
  Report Type: 
  Country: None (occurrence: None)
  Receive Date: 20070604
  Receipt Date: 20070529
  Transmission Date: 20071010
  Serious: Yes (Life-Threatening)
  Sender: FDA-Public Use
  Company Number: FR-ASTRAZENECA-2007AC00982

PATIENT
  Age: 14 Year
  Sex: Female

DRUGS (4)
  1. OMEPRAZOLE [Suspect]
  2. VORICONAZOLE [Interacting]
     Indication: FUNGAL INFECTION
     Route: 042
  3. POSACONAZOLE [Interacting]
     Indication: FUNGAL INFECTION
     Route: 048
  4. CASPOFUNGIN [Concomitant]
     Indication: FUNGAL INFECTION
     Route: 042

REACTIONS (4)
  - CARDIAC ARREST [None]
  - DRUG INTERACTION [None]
  - ELECTROCARDIOGRAM QT PROLONGED [None]
  - TORSADE DE POINTES [None]
